FAERS Safety Report 16683476 (Version 1)
Quarter: 2019Q3

REPORT INFORMATION
  Report Type: Spontaneous
  Country: DE (occurrence: DE)
  Receive Date: 20190808
  Receipt Date: 20190808
  Transmission Date: 20191004
  Serious: Yes (Hospitalization)
  Sender: FDA-Public Use
  Company Number: DE-ACCORD-150515

PATIENT
  Age: 78 Year
  Sex: Male
  Weight: 91 kg

DRUGS (10)
  1. ATORVASTATIN [Concomitant]
     Active Substance: ATORVASTATIN
     Dosage: 10 MG, UNTIL 07-FEB-2017, TABLETS
     Route: 048
  2. PANTOPRAZOLE [Concomitant]
     Active Substance: PANTOPRAZOLE
     Dosage: TABLET
     Route: 048
  3. FUROSEMIDE. [Suspect]
     Active Substance: FUROSEMIDE
     Indication: PRODUCT USED FOR UNKNOWN INDICATION
     Dosage: 500 MG, 1-1-0, TABLET
     Route: 048
  4. ASPIRIN. [Concomitant]
     Active Substance: ASPIRIN
     Dosage: 100 MG, 1-0-0, TABLET
     Route: 048
  5. SPIRONOLACTONE. [Concomitant]
     Active Substance: SPIRONOLACTONE
     Dosage: 50 MG, 1/2-0-0, TABLET
     Route: 048
  6. MILGAMMA MONO [Concomitant]
     Dosage: 150 MG, 1-0-0, TABLET
     Route: 048
  7. NOVALGIN [Concomitant]
     Dosage: 30-30-30-30, DROPS
     Route: 048
  8. JANUVIA [Concomitant]
     Active Substance: SITAGLIPTIN PHOSPHATE
     Dosage: 25 MG, 1-0-0, TABLET
     Route: 048
  9. PREDNISOLONE. [Concomitant]
     Active Substance: PREDNISOLONE
     Dosage: 5 MG, 11/2-0-0, TABLET
     Route: 048
  10. CALCILAC [Concomitant]
     Active Substance: CALCIUM CARBONATE
     Dosage: 1-0-1, CHEWABLE TABLETS
     Route: 048

REACTIONS (3)
  - Oedema peripheral [Unknown]
  - Blood creatinine increased [Unknown]
  - Hypokalaemia [Unknown]
